FAERS Safety Report 10010895 (Version 2)
Quarter: 2014Q1

REPORT INFORMATION
  Report Type: Spontaneous
  Country: US (occurrence: None)
  Receive Date: 20140304
  Receipt Date: 20140304
  Transmission Date: 20141002
  Serious: Yes (Other)
  Sender: FDA-Public Use
  Company Number: RB-42038-2012

PATIENT
  Age: 33 Year
  Sex: Female

DRUGS (4)
  1. SUBOXONE [Suspect]
     Indication: PRODUCT USED FOR UNKNOWN INDICATION
     Dosage: DOSAGE DETAILS UNKNOWN
  2. SUBOXONE [Suspect]
     Indication: PRODUCT USED FOR UNKNOWN INDICATION
     Dates: start: 2009
  3. SUBUTEX [Suspect]
     Indication: PRODUCT USED FOR UNKNOWN INDICATION
  4. LORATAB [Concomitant]

REACTIONS (16)
  - Exposure during pregnancy [None]
  - Substance abuse [None]
  - Headache [None]
  - Somnambulism [None]
  - Depression [None]
  - Diarrhoea [None]
  - Fatigue [None]
  - Irritability [None]
  - Polyuria [None]
  - Pain in extremity [None]
  - Underdose [None]
  - Malaise [None]
  - Nausea [None]
  - Vomiting [None]
  - Wrong technique in drug usage process [None]
  - Eczema [None]
